FAERS Safety Report 9404715 (Version 3)
Quarter: 2013Q4

REPORT INFORMATION
  Report Type: Spontaneous
  Country: BR (occurrence: BR)
  Receive Date: 20130717
  Receipt Date: 20131022
  Transmission Date: 20140711
  Serious: Yes (Other)
  Sender: FDA-Public Use
  Company Number: PHHY2013BR075625

PATIENT
  Sex: Female

DRUGS (3)
  1. TRILEPTAL [Suspect]
     Indication: SEIZURE LIKE PHENOMENA
     Dosage: 2 DF DAILY
     Route: 048
  2. CHEMOTHERAPEUTICS [Concomitant]
     Dosage: UNK UKN, UNK
  3. RADIOTHERAPY [Concomitant]
     Dosage: UNK UKN, UNK

REACTIONS (6)
  - Head and neck cancer [Unknown]
  - Immunodeficiency [Recovered/Resolved]
  - Nasal discomfort [Recovered/Resolved]
  - Seizure like phenomena [Recovered/Resolved]
  - Headache [Recovered/Resolved]
  - Dizziness [Recovered/Resolved]
